FAERS Safety Report 22399614 (Version 4)
Quarter: 2024Q3

REPORT INFORMATION
  Report Type: Spontaneous
  Country: FR (occurrence: FR)
  Receive Date: 20230602
  Receipt Date: 20240812
  Transmission Date: 20241016
  Serious: Yes (Other)
  Sender: PFIZER
  Company Number: FR-UCBSA-2023026287

PATIENT
  Age: 44 Year
  Sex: Female

DRUGS (21)
  1. METHOTREXATE SODIUM [Suspect]
     Active Substance: METHOTREXATE SODIUM
     Dosage: 15 MILLIGRAM ONCE A WEEK IN PEN FOR INJECTION
  2. METHOTREXATE SODIUM [Suspect]
     Active Substance: METHOTREXATE SODIUM
     Dosage: 20 MG, WEEKLY
  3. CIMZIA [Suspect]
     Active Substance: CERTOLIZUMAB PEGOL
     Indication: Spondylitis
     Dosage: UNK
     Dates: start: 20150324, end: 2015
  4. CIMZIA [Suspect]
     Active Substance: CERTOLIZUMAB PEGOL
     Dosage: UNK
     Dates: start: 20150827, end: 201702
  5. CIMZIA [Suspect]
     Active Substance: CERTOLIZUMAB PEGOL
     Dosage: UNK
     Dates: start: 20190104, end: 20190903
  6. ADALAT [Concomitant]
     Active Substance: NIFEDIPINE
     Indication: Raynaud^s phenomenon
  7. ALPRAZOLAM [Concomitant]
     Active Substance: ALPRAZOLAM
     Indication: Depression
     Dosage: 0.50 ON REQUEST UP TO TWO TABLETS PER DAY
  8. PREDNISONE [Concomitant]
     Active Substance: PREDNISONE
     Dosage: 5 MG, 1X/DAY
  9. COSENTYX [Concomitant]
     Active Substance: SECUKINUMAB
     Dosage: UNK
     Dates: start: 201704
  10. COSENTYX [Concomitant]
     Active Substance: SECUKINUMAB
     Dosage: 300 MG, MONTHLY FOR 6 MONTHS
     Dates: start: 201707
  11. DAFALGAN CODEINE [Concomitant]
     Active Substance: ACETAMINOPHEN\CODEINE PHOSPHATE
     Dosage: UNK
  12. ACETAMINOPHEN [Concomitant]
     Active Substance: ACETAMINOPHEN
     Dosage: 500MG XJ PER DAY; EVERY DAY, DEPENDING ON ITS ACTIVITY
  13. EFFEXOR [Concomitant]
     Active Substance: VENLAFAXINE HYDROCHLORIDE
     Indication: Depression
     Dosage: 75 MG, 2X/DAY
  14. ESOMEPRAZOLE [Concomitant]
     Active Substance: ESOMEPRAZOLE
     Indication: Gastrooesophageal reflux disease
  15. FENTANYL [Concomitant]
     Active Substance: FENTANYL\FENTANYL CITRATE
  16. HYDROCORTISONE [Concomitant]
     Active Substance: HYDROCORTISONE\HYDROCORTISONE ACETATE
     Dosage: 10 MILLIGRAM MORNING AND NOON
  17. PLAQUENIL [Concomitant]
     Active Substance: HYDROXYCHLOROQUINE SULFATE
     Dosage: 200 MG, 2X/DAY
     Dates: start: 202106
  18. SIMPONI [Concomitant]
     Active Substance: GOLIMUMAB
  19. FOLIC ACID [Concomitant]
     Active Substance: FOLIC ACID
     Dosage: 5 MG, WEEKLY
  20. STELARA [Concomitant]
     Active Substance: USTEKINUMAB
     Dosage: UNK
  21. ANETHOLTRITHION [Concomitant]
     Active Substance: ANETHOLTRITHION

REACTIONS (28)
  - Scleroderma [Unknown]
  - Myelodysplastic syndrome [Unknown]
  - Peripheral ischaemia [Unknown]
  - Systemic lupus erythematosus [Unknown]
  - Ankylosing spondylitis [Unknown]
  - Adrenal insufficiency [Unknown]
  - Gastrointestinal disorder [Unknown]
  - Anaemia macrocytic [Unknown]
  - Pain [Unknown]
  - Suspected COVID-19 [Unknown]
  - Photosensitivity reaction [Unknown]
  - Middle insomnia [Unknown]
  - Inflammation [Unknown]
  - Asthenia [Unknown]
  - Epidural analgesia [Unknown]
  - Hypovitaminosis [Unknown]
  - Sciatica [Unknown]
  - Spinal pain [Unknown]
  - Arthrodesis [Unknown]
  - Weight decreased [Unknown]
  - General physical health deterioration [Unknown]
  - Terminal insomnia [Unknown]
  - Fatigue [Unknown]
  - Hysterectomy [Unknown]
  - Psoriasis [Unknown]
  - Back pain [Unknown]
  - Prolapse repair [Unknown]
  - Oophorectomy [Unknown]

NARRATIVE: CASE EVENT DATE: 20190501
